FAERS Safety Report 6873828-6 (Version None)
Quarter: 2010Q3

REPORT INFORMATION
  Report Type: 
  Country: None (occurrence: None)
  Receive Date: 20100723
  Receipt Date: 20090313
  Transmission Date: 20110219
  Serious: Yes (Other)
  Sender: FDA-Public Use
  Company Number: US-PFIZER INC-2009183649

PATIENT
  Sex: Female
  Weight: 61.224 kg

DRUGS (2)
  1. CHANTIX [Suspect]
     Indication: SMOKING CESSATION THERAPY
     Dosage: 1 MG, 2X/DAY
     Dates: start: 20080901, end: 20081101
  2. ETHINYL ESTRADIOL AND NORETHINDRONE [Concomitant]
     Indication: CONTRACEPTION
     Dosage: UNKNOWN

REACTIONS (4)
  - ABNORMAL DREAMS [None]
  - CONVULSION [None]
  - HEAD INJURY [None]
  - INSOMNIA [None]
